FAERS Safety Report 13749582 (Version 1)
Quarter: 2017Q3

REPORT INFORMATION
  Report Type: Spontaneous
  Country: US (occurrence: US)
  Receive Date: 20170713
  Receipt Date: 20170713
  Transmission Date: 20171127
  Serious: No
  Sender: FDA-Public Use
  Company Number: None

PATIENT
  Age: 85 Year
  Sex: Female

DRUGS (1)
  1. IBRANCE [Suspect]
     Active Substance: PALBOCICLIB
     Indication: BREAST CANCER FEMALE
     Dosage: 125MG ONCE A DAY FOR 21 DAYS AND 7 DAYS OFF
     Dates: start: 20161116

REACTIONS (1)
  - Alopecia [None]

NARRATIVE: CASE EVENT DATE: 20170515
